FAERS Safety Report 8045776-X (Version None)
Quarter: 2012Q1

REPORT INFORMATION
  Report Type: 
  Country: None (occurrence: None)
  Receive Date: 20120113
  Receipt Date: 20120111
  Transmission Date: 20120608
  Serious: Yes (Other)
  Sender: FDA-Public Use
  Company Number: PHHY2011JP099830

PATIENT
  Sex: Male
  Weight: 65 kg

DRUGS (4)
  1. GASMOTIN [Concomitant]
     Indication: CONSTIPATION
     Dosage: UNK UKN, UNK
     Route: 048
     Dates: start: 20111019, end: 20111111
  2. TEGRETOL [Suspect]
     Indication: EPILEPSY
     Dosage: 1200 MG, DAILY
     Route: 048
     Dates: start: 20111003, end: 20111028
  3. MAGMITT KENEI [Concomitant]
     Indication: CONSTIPATION
     Dosage: UNK UKN, UNK
     Route: 048
     Dates: start: 20111019
  4. KEPPRA [Concomitant]
     Indication: EPILEPSY
     Dosage: UNK UKN, UNK
     Route: 048
     Dates: start: 20111003

REACTIONS (5)
  - DYSKINESIA [None]
  - EMOTIONAL DISTRESS [None]
  - ATHETOSIS [None]
  - ANTICONVULSANT DRUG LEVEL INCREASED [None]
  - BALLISMUS [None]
